FAERS Safety Report 6482646-2 (Version None)
Quarter: 2009Q4

REPORT INFORMATION
  Report Type: 
  Country: None (occurrence: None)
  Receive Date: 20091209
  Receipt Date: 20091203
  Transmission Date: 20100525
  Serious: Yes (Hospitalization)
  Sender: FDA-Public Use
  Company Number: US-BIOGENIDEC-2009BI033580

PATIENT
  Sex: Female

DRUGS (16)
  1. AVONEX [Suspect]
     Indication: MULTIPLE SCLEROSIS
     Route: 030
  2. AVONEX [Suspect]
     Route: 030
     Dates: start: 20020501
  3. VERAPAMIL [Concomitant]
     Dates: start: 20090602
  4. ACCUPRIL [Concomitant]
     Dates: start: 20090602
  5. PRAVASTATIN [Concomitant]
     Dates: start: 20090602
  6. TYLENOL (CAPLET) [Concomitant]
     Dates: start: 20090602
  7. NAPROXEN [Concomitant]
     Dates: start: 20090602
  8. IMITREX [Concomitant]
     Dates: start: 20090602
  9. VITAMIN D [Concomitant]
     Dates: start: 20090602
  10. VITAMIN B COMPLEX CAP [Concomitant]
     Dates: start: 20090602
  11. OMEPRAZOLE [Concomitant]
     Dates: start: 20090602
  12. ALPRAZOLAM [Concomitant]
     Dates: start: 20090602
  13. FIBERLAX [Concomitant]
     Dates: start: 20090602
  14. OXYBUTYNIN CHLORIDE [Concomitant]
     Dates: start: 20090602
  15. LEXAPRO [Concomitant]
     Dates: start: 20090602
  16. LOVAZA [Concomitant]
     Dates: start: 20090602

REACTIONS (7)
  - ANXIETY [None]
  - ARTHRITIS [None]
  - DEPRESSION [None]
  - EATING DISORDER [None]
  - GRIEF REACTION [None]
  - INSOMNIA [None]
  - INTERVERTEBRAL DISC PROTRUSION [None]
